FAERS Safety Report 23981615 (Version 1)
Quarter: 2024Q2

REPORT INFORMATION
  Report Type: Spontaneous
  Country: US (occurrence: None)
  Receive Date: 20240615
  Receipt Date: 20240615
  Transmission Date: 20240715
  Serious: Yes (Hospitalization)
  Sender: FDA-Public Use
  Company Number: None

PATIENT
  Age: 87 Year
  Sex: Male
  Weight: 92.44 kg

DRUGS (5)
  1. FLUOROURACIL [Suspect]
     Active Substance: FLUOROURACIL
     Dates: end: 20240424
  2. IRINOTECAN [Suspect]
     Active Substance: IRINOTECAN
     Dates: end: 20240424
  3. LEUCOVORIN CALCIUM [Suspect]
     Active Substance: LEUCOVORIN CALCIUM
     Dates: end: 20240424
  4. NIVOLUMAB [Suspect]
     Active Substance: NIVOLUMAB
     Dates: end: 20240424
  5. OXALIPLATIN [Suspect]
     Active Substance: OXALIPLATIN
     Dates: end: 20240424

REACTIONS (8)
  - Failure to thrive [None]
  - Confusional state [None]
  - Asthenia [None]
  - Dysarthria [None]
  - Dehydration [None]
  - Decreased appetite [None]
  - Hallucination [None]
  - Hyponatraemia [None]

NARRATIVE: CASE EVENT DATE: 20240606
